FAERS Safety Report 25327617 (Version 6)
Quarter: 2025Q4

REPORT INFORMATION
  Report Type: Spontaneous
  Country: US (occurrence: US)
  Receive Date: 20250517
  Receipt Date: 20251008
  Transmission Date: 20260118
  Serious: No
  Sender: SANOFI AVENTIS
  Company Number: US-SA-2025SA130455

PATIENT
  Age: 12 Year
  Sex: Male

DRUGS (2)
  1. DUPIXENT [Suspect]
     Active Substance: DUPILUMAB
     Indication: Eosinophilic oesophagitis
     Dosage: 300 MG, QW
     Route: 058
     Dates: start: 20250324, end: 2025
  2. DUPIXENT [Suspect]
     Active Substance: DUPILUMAB
     Dosage: 300 MG, QOW
     Route: 058
     Dates: start: 20250721

REACTIONS (16)
  - Abdominal pain upper [Unknown]
  - Skin swelling [Recovered/Resolved]
  - Muscular weakness [Unknown]
  - Myalgia [Recovered/Resolved]
  - Myalgia [Unknown]
  - Mobility decreased [Unknown]
  - Pain of skin [Recovered/Resolved]
  - Pruritus [Recovered/Resolved]
  - Arthralgia [Unknown]
  - Injection site swelling [Unknown]
  - Injection site pruritus [Unknown]
  - Injection site pain [Unknown]
  - Eosinophilic oesophagitis [Not Recovered/Not Resolved]
  - Nausea [Not Recovered/Not Resolved]
  - Abdominal pain [Recovered/Resolved]
  - Off label use [Unknown]

NARRATIVE: CASE EVENT DATE: 20250101
